FAERS Safety Report 8679668 (Version 4)
Quarter: 2012Q4

REPORT INFORMATION
  Report Type: 
  Country: MY (occurrence: MY)
  Receive Date: 20120724
  Receipt Date: 20121025
  Transmission Date: 20130627
  Serious: Yes (Other)
  Sender: FDA-Public Use
  Company Number: MY-SANOFI-AVENTIS-2012SA050435

PATIENT
  Age: 35 Year
  Sex: Female
  Weight: 66 kg

DRUGS (3)
  1. ARAVA [Suspect]
     Indication: PSORIATIC ARTHRITIS
     Route: 048
     Dates: start: 20111109, end: 20120710
  2. LOVASTATIN [Concomitant]
     Indication: LIPIDS INCREASED
     Dosage: strength: 20mg
     Route: 048
     Dates: start: 20100919, end: 20120710
  3. CELEBREX [Concomitant]
     Indication: ANALGESIA
     Dosage: strength: 200mg; as needed
     Route: 048
     Dates: start: 20080919, end: 20120710

REACTIONS (2)
  - Abortion induced [Unknown]
  - Exposure during pregnancy [Unknown]
